FAERS Safety Report 7944003-9 (Version None)
Quarter: 2011Q4

REPORT INFORMATION
  Report Type: 
  Country: None (occurrence: None)
  Receive Date: 20111128
  Receipt Date: 20111118
  Transmission Date: 20120403
  Serious: Yes (Hospitalization)
  Sender: FDA-Public Use
  Company Number: CA-ROCHE-1014784

PATIENT
  Sex: Male

DRUGS (3)
  1. LUCENTIS [Suspect]
     Route: 050
     Dates: start: 20110801
  2. LUCENTIS [Suspect]
     Indication: AGE-RELATED MACULAR DEGENERATION
     Route: 050
     Dates: start: 20110707
  3. LUCENTIS [Suspect]
     Route: 050
     Dates: start: 20110916

REACTIONS (3)
  - CAROTID ARTERY THROMBOSIS [None]
  - CEREBROVASCULAR ACCIDENT [None]
  - CAROTID ARTERY STENOSIS [None]
